FAERS Safety Report 11827698 (Version 2)
Quarter: 2016Q1

REPORT INFORMATION
  Report Type: Spontaneous
  Country: JP (occurrence: JP)
  Receive Date: 20151211
  Receipt Date: 20160122
  Transmission Date: 20160525
  Serious: Yes (Other)
  Sender: FDA-Public Use
  Company Number: JP-SA-2015SA206089

PATIENT

DRUGS (2)
  1. LANDSEN [Suspect]
     Active Substance: CLONAZEPAM
     Route: 065
  2. LASIX [Suspect]
     Active Substance: FUROSEMIDE
     Route: 048

REACTIONS (1)
  - Electrocardiogram QT prolonged [Unknown]
